FAERS Safety Report 20769172 (Version 1)
Quarter: 2022Q2

REPORT INFORMATION
  Report Type: Spontaneous
  Country: CN (occurrence: CN)
  Receive Date: 20220429
  Receipt Date: 20220429
  Transmission Date: 20220721
  Serious: Yes (Hospitalization, Other)
  Sender: FDA-Public Use
  Company Number: CN-SLATE RUN PHARMACEUTICALS-22CN001061

PATIENT

DRUGS (1)
  1. AZITHROMYCIN [Suspect]
     Active Substance: AZITHROMYCIN
     Indication: Maternal exposure during pregnancy
     Dosage: UNK
     Route: 015

REACTIONS (13)
  - Premature baby [Recovered/Resolved]
  - Low birth weight baby [Recovered/Resolved]
  - Listeriosis [Recovered/Resolved]
  - Apgar score low [Recovered/Resolved]
  - Meconium in amniotic fluid [Recovered/Resolved]
  - Neonatal respiratory distress [Recovered/Resolved]
  - Infantile apnoea [Recovered/Resolved]
  - Lethargy [Recovered/Resolved]
  - Neonatal respiratory failure [Recovered/Resolved]
  - Sepsis neonatal [Recovered/Resolved]
  - Neonatal pneumonia [Recovered/Resolved]
  - Patent ductus arteriosus [Recovered/Resolved]
  - Foetal exposure during pregnancy [Recovered/Resolved]
